FAERS Safety Report 11659521 (Version 1)
Quarter: 2015Q4

REPORT INFORMATION
  Report Type: Other
  Country: CA (occurrence: CA)
  Receive Date: 20151026
  Receipt Date: 20151026
  Transmission Date: 20160304
  Serious: Yes (Life-Threatening, Other)
  Sender: FDA-Public Use
  Company Number: CA-APOTEX-2015AP013659

PATIENT
  Age: 53 Year
  Sex: Female
  Weight: 68 kg

DRUGS (4)
  1. LITHIUM. [Concomitant]
     Active Substance: LITHIUM
     Indication: PRODUCT USED FOR UNKNOWN INDICATION
     Route: 065
  2. ZOPICLONE [Concomitant]
     Active Substance: ZOPICLONE
     Indication: PRODUCT USED FOR UNKNOWN INDICATION
     Route: 065
  3. APO-MIRTAZAPINE [Suspect]
     Active Substance: MIRTAZAPINE
     Indication: DEPRESSION
     Dosage: 120 MG, QID
     Route: 048
  4. QUETIAPINE [Concomitant]
     Active Substance: QUETIAPINE
     Indication: PRODUCT USED FOR UNKNOWN INDICATION
     Route: 065

REACTIONS (11)
  - Chest pain [Recovering/Resolving]
  - Crying [Recovering/Resolving]
  - Fear [Recovering/Resolving]
  - Fatigue [Recovering/Resolving]
  - Blood pressure increased [Recovering/Resolving]
  - Product substitution issue [Recovering/Resolving]
  - Heart rate increased [Recovering/Resolving]
  - Anxiety [Recovering/Resolving]
  - Screaming [Recovering/Resolving]
  - Suicidal ideation [Recovering/Resolving]
  - Feeling abnormal [Recovering/Resolving]
